FAERS Safety Report 4328515-5 (Version None)
Quarter: 2004Q1

REPORT INFORMATION
  Report Type: 
  Country: None (occurrence: None)
  Receive Date: 20040331
  Receipt Date: 20040217
  Transmission Date: 20041129
  Serious: Yes (Death, Hospitalization)
  Sender: FDA-Public Use
  Company Number: CN-MERCK-0402CHN00012

PATIENT
  Age: 65 Year
  Sex: Female

DRUGS (10)
  1. AMOXICILLIN AND CLAVULANATE POTASSIUM [Concomitant]
     Indication: LUNG INFECTION
     Route: 048
     Dates: start: 20040101
  2. CARVEDILOL [Concomitant]
     Indication: ACUTE MYOCARDIAL INFARCTION
     Route: 048
  3. CEFACLOR [Concomitant]
     Indication: LUNG INFECTION
     Route: 048
     Dates: start: 20040101
  4. CLINDAMYCIN [Concomitant]
     Indication: LUNG INFECTION
     Route: 048
     Dates: start: 20040101
  5. INSULIN [Concomitant]
     Indication: DIABETES MELLITUS
     Route: 042
     Dates: start: 20040101
  6. ISOSORBIDE DINITRATE [Concomitant]
     Indication: ACUTE MYOCARDIAL INFARCTION
     Route: 048
  7. LEVOFLOXACIN [Concomitant]
     Indication: LUNG INFECTION
     Route: 048
     Dates: start: 20040101
  8. NADROPARIN [Concomitant]
     Indication: ACUTE MYOCARDIAL INFARCTION
     Route: 042
  9. NADROPARIN [Concomitant]
     Indication: CEREBRAL INFARCTION
     Route: 042
  10. ZOCOR [Suspect]
     Indication: CORONARY ARTERY DISEASE
     Route: 048
     Dates: start: 20040129, end: 20040210

REACTIONS (4)
  - BLOOD CREATINE PHOSPHOKINASE INCREASED [None]
  - BLOOD CREATINE PHOSPHOKINASE MB INCREASED [None]
  - LUNG INFECTION [None]
  - MYALGIA [None]
